FAERS Safety Report 10102318 (Version 1)
Quarter: 2014Q2

REPORT INFORMATION
  Report Type: Spontaneous
  Country: RU (occurrence: RU)
  Receive Date: 20140424
  Receipt Date: 20140424
  Transmission Date: 20141212
  Serious: Yes (Death)
  Sender: FDA-Public Use
  Company Number: RU-ACTELION-A-CH2014-97888

PATIENT
  Age: 12 Year
  Sex: Male

DRUGS (2)
  1. TRACLEER [Suspect]
     Indication: PULMONARY ARTERIAL HYPERTENSION
     Dosage: 62.5 MG, OD
     Route: 048
     Dates: start: 201305, end: 201403
  2. SILDENAFIL [Concomitant]
     Dosage: 50 MG, TID
     Route: 048

REACTIONS (4)
  - Cardiac failure [Fatal]
  - Feeling abnormal [Fatal]
  - Dizziness [Fatal]
  - Pallor [Fatal]
